FAERS Safety Report 12534657 (Version 1)
Quarter: 2016Q3

REPORT INFORMATION
  Report Type: Other
  Country: None (occurrence: US)
  Receive Date: 20160706
  Receipt Date: 20160706
  Transmission Date: 20161109
  Serious: Yes (Other)
  Sender: FDA-Public Use
  Company Number: US-GUTHY-RENKER LLC-1054748

PATIENT
  Sex: Male

DRUGS (1)
  1. VITACLEAR SUPPLEMENT [Suspect]
     Active Substance: MINERALS\VITAMINS
     Indication: ACNE
     Route: 061
     Dates: start: 20160205, end: 20160219

REACTIONS (3)
  - Asthma [None]
  - Rash [None]
  - Skin discolouration [Recovered/Resolved]

NARRATIVE: CASE EVENT DATE: 20160219
